FAERS Safety Report 7344620-3 (Version None)
Quarter: 2011Q1

REPORT INFORMATION
  Report Type: 
  Country: None (occurrence: None)
  Receive Date: 20110307
  Receipt Date: 20110307
  Transmission Date: 20110831
  Serious: No
  Sender: FDA-Public Use
  Company Number: None

PATIENT
  Age: 65 Year
  Sex: Female
  Weight: 72 kg

DRUGS (1)
  1. TELAVANCIN HYDROCHLORIDE [Suspect]
     Indication: SEPTIC ARTHRITIS STAPHYLOCOCCAL
     Dosage: 10MG/KG DAILY IV
     Route: 042
     Dates: start: 20101105, end: 20101117

REACTIONS (1)
  - RENAL FAILURE ACUTE [None]
